FAERS Safety Report 15076419 (Version 5)
Quarter: 2018Q3

REPORT INFORMATION
  Report Type: Spontaneous
  Country: CA (occurrence: CA)
  Receive Date: 20180627
  Receipt Date: 20180925
  Transmission Date: 20181010
  Serious: Yes (Other)
  Sender: FDA-Public Use
  Company Number: CA-CELLTRION INC.-2018CA019046

PATIENT

DRUGS (8)
  1. INFLECTRA [Suspect]
     Active Substance: INFLIXIMAB-DYYB
     Dosage: 450 MG, CYCLIC (EVERY 0,2,6 WEEKS, THEN EVERY 9 WEEKS)
     Route: 042
     Dates: start: 20180621
  2. VITAMIN D                          /00107901/ [Concomitant]
     Active Substance: ERGOCALCIFEROL
     Dosage: UNK
  3. INFLECTRA [Suspect]
     Active Substance: INFLIXIMAB-DYYB
     Indication: COLITIS ULCERATIVE
     Dosage: 450 MG, CYCLIC (EVERY 0,2,6 WEEKS, THEN EVERY 9 WEEKS)
     Route: 042
     Dates: start: 20180314
  4. INFLECTRA [Suspect]
     Active Substance: INFLIXIMAB-DYYB
     Dosage: 450 MG, CYCLIC (EVERY 0,2,6 WEEKS, THEN EVERY 9 WEEKS)
     Route: 042
     Dates: start: 20180423
  5. PANTOLOC                           /01263201/ [Concomitant]
     Active Substance: PANTOPRAZOLE SODIUM
     Dosage: UNK
  6. NORVASC [Concomitant]
     Active Substance: AMLODIPINE BESYLATE
     Dosage: UNK
  7. DIPHENHYDRAMINE. [Concomitant]
     Active Substance: DIPHENHYDRAMINE
  8. INFLECTRA [Suspect]
     Active Substance: INFLIXIMAB-DYYB
     Dosage: 450 MG, CYCLIC (EVERY 0,2,6 WEEKS, THEN EVERY 9 WEEKS)
     Route: 042
     Dates: start: 20180327

REACTIONS (6)
  - Joint swelling [Not Recovered/Not Resolved]
  - Condition aggravated [Not Recovered/Not Resolved]
  - Blood pressure fluctuation [Unknown]
  - Somnolence [Unknown]
  - Fatigue [Not Recovered/Not Resolved]
  - Pruritus [Recovered/Resolved]

NARRATIVE: CASE EVENT DATE: 20180314
